FAERS Safety Report 25785896 (Version 1)
Quarter: 2025Q3

REPORT INFORMATION
  Report Type: Spontaneous
  Country: US (occurrence: None)
  Receive Date: 20250909
  Receipt Date: 20250909
  Transmission Date: 20251020
  Serious: Yes (Death, Hospitalization)
  Sender: FDA-CTU
  Company Number: None

PATIENT
  Age: 64 Year
  Sex: Male

DRUGS (14)
  1. OFEV [Suspect]
     Active Substance: NINTEDANIB
     Indication: Interstitial lung disease
     Dosage: 150MG BID ORAL
     Route: 048
     Dates: start: 20190703, end: 20250629
  2. FUROSEMIDE [Concomitant]
     Active Substance: FUROSEMIDE
  3. LOSARTAN [Concomitant]
     Active Substance: LOSARTAN
  4. ASPIRIN [Concomitant]
     Active Substance: ASPIRIN
  5. ATORVASTATIN [Concomitant]
     Active Substance: ATORVASTATIN
  6. BISOPROLOL [Concomitant]
     Active Substance: BISOPROLOL
  7. BENZONATATE [Concomitant]
     Active Substance: BENZONATATE
  8. AZELASTINE [Concomitant]
     Active Substance: AZELASTINE
  9. LOMOTIL [Concomitant]
     Active Substance: ATROPINE SULFATE\DIPHENOXYLATE HYDROCHLORIDE
  10. NITROSTAT [Concomitant]
     Active Substance: NITROGLYCERIN
  11. HUMULIN N [Concomitant]
     Active Substance: INSULIN HUMAN
  12. metrofmin [Concomitant]
  13. POTASSIUM CHLORIDE [Concomitant]
     Active Substance: POTASSIUM CHLORIDE
  14. FLOMAX [Concomitant]
     Active Substance: TAMSULOSIN HYDROCHLORIDE

REACTIONS (10)
  - Respiratory failure [None]
  - Septic shock [None]
  - Rhinovirus infection [None]
  - Pneumonia [None]
  - Myocardial ischaemia [None]
  - Cardiac failure congestive [None]
  - Oxygen consumption increased [None]
  - Lethargy [None]
  - General physical health deterioration [None]
  - Dysphagia [None]

NARRATIVE: CASE EVENT DATE: 20250611
